FAERS Safety Report 11767245 (Version 1)
Quarter: 2015Q4

REPORT INFORMATION
  Report Type: Spontaneous
  Country: US (occurrence: None)
  Receive Date: 20151120
  Receipt Date: 20151120
  Transmission Date: 20160304
  Serious: Yes (Hospitalization)
  Sender: FDA-Public Use
  Company Number: None

PATIENT
  Age: 33 Year
  Sex: Male
  Weight: 72.12 kg

DRUGS (2)
  1. ACETAMINOPHEN/OXYCODONE [Suspect]
     Active Substance: ACETAMINOPHEN\OXYCODONE HYDROCHLORIDE
     Indication: PAIN
     Dosage: 10/325 MG
     Route: 048
     Dates: start: 20151111
  2. ACETAMINOPHEN/HYDROCODONE [Suspect]
     Active Substance: ACETAMINOPHEN\HYDROCODONE
     Dosage: MG  PO
     Route: 048
     Dates: start: 20151026

REACTIONS (8)
  - Confusional state [None]
  - Death of relative [None]
  - Refusal of treatment by patient [None]
  - Impaired driving ability [None]
  - Sedation [None]
  - Post-traumatic stress disorder [None]
  - Overdose [None]
  - Imprisonment [None]

NARRATIVE: CASE EVENT DATE: 20151110
